FAERS Safety Report 11050367 (Version 2)
Quarter: 2015Q3

REPORT INFORMATION
  Report Type: Report from Study
  Country: US (occurrence: US)
  Receive Date: 20150421
  Receipt Date: 20150804
  Transmission Date: 20151125
  Serious: No
  Sender: FDA-Public Use
  Company Number: US-AMGEN-USASL2015037541

PATIENT
  Age: 63 Year
  Sex: Male

DRUGS (1)
  1. ENBREL [Suspect]
     Active Substance: ETANERCEPT
     Indication: PSORIASIS
     Dosage: UNK UNK, QWK
     Route: 065
     Dates: start: 2011

REACTIONS (7)
  - Skin exfoliation [Not Recovered/Not Resolved]
  - Fatigue [Recovered/Resolved]
  - Psoriasis [Unknown]
  - Skin discolouration [Not Recovered/Not Resolved]
  - Urinary tract infection [Recovered/Resolved]
  - Dry skin [Not Recovered/Not Resolved]
  - Scab [Not Recovered/Not Resolved]

NARRATIVE: CASE EVENT DATE: 2011
